FAERS Safety Report 5068976-X (Version None)
Quarter: 2006Q3

REPORT INFORMATION
  Report Type: 
  Country: None (occurrence: None)
  Receive Date: 20060801
  Receipt Date: 20060801
  Transmission Date: 20061208
  Serious: Yes (Other)
  Sender: FDA-Public Use
  Company Number: None

PATIENT
  Age: 12 Year
  Sex: Male
  Weight: 52.1637 kg

DRUGS (1)
  1. WELLBUTRIN [Suspect]
     Indication: BIPOLAR DISORDER
     Dosage: 300 MG DAILY PO
     Route: 048
     Dates: start: 20060123, end: 20060628

REACTIONS (2)
  - GRAND MAL CONVULSION [None]
  - PETIT MAL EPILEPSY [None]
